FAERS Safety Report 4583702-6 (Version None)
Quarter: 2005Q1

REPORT INFORMATION
  Report Type: 
  Country: None (occurrence: None)
  Receive Date: 20050216
  Receipt Date: 20041029
  Transmission Date: 20050727
  Serious: Yes (Death, Hospitalization, Other)
  Sender: FDA-Public Use
  Company Number: JP-BRISTOL-MYERS SQUIBB COMPANY-12758033

PATIENT
  Age: 46 Year
  Sex: Male

DRUGS (9)
  1. IFOMIDE [Suspect]
     Indication: SYNOVIAL SARCOMA
     Route: 041
     Dates: start: 20041019, end: 20041022
  2. UROMITEXAN [Suspect]
     Indication: SYNOVIAL SARCOMA
     Route: 042
     Dates: start: 20041019, end: 20041022
  3. ADRIACIN [Suspect]
     Indication: SYNOVIAL SARCOMA
     Route: 041
     Dates: start: 20041019, end: 20041020
  4. INSULIN HUMAN [Concomitant]
     Indication: DIABETES MELLITUS
     Route: 058
     Dates: start: 20041021, end: 20041023
  5. TAGAMET [Concomitant]
     Dates: start: 20041019, end: 20041023
  6. GLUCOBAY [Concomitant]
     Indication: DIABETES MELLITUS
     Route: 048
     Dates: end: 20041021
  7. AMARYL [Concomitant]
     Indication: DIABETES MELLITUS
     Route: 048
     Dates: end: 20041020
  8. METFORMIN HCL [Concomitant]
     Indication: DIABETES MELLITUS
     Route: 048
     Dates: end: 20041020
  9. DIAMOX [Concomitant]
     Route: 042
     Dates: start: 20041019, end: 20041022

REACTIONS (20)
  - BASE EXCESS [None]
  - BLOOD GLUCOSE FLUCTUATION [None]
  - BRAIN OEDEMA [None]
  - CARDIAC ARREST [None]
  - CARDIAC FAILURE CONGESTIVE [None]
  - CARDIOMYOPATHY [None]
  - DEATH [None]
  - HEADACHE [None]
  - HEPATIC TRAUMA [None]
  - INTRA-ABDOMINAL HAEMORRHAGE [None]
  - LUNG DISORDER [None]
  - MALAISE [None]
  - METABOLIC ACIDOSIS [None]
  - NERVOUS SYSTEM DISORDER [None]
  - RENAL DISORDER [None]
  - SHOCK [None]
  - SUDDEN DEATH [None]
  - TINNITUS [None]
  - URINE KETONE BODY PRESENT [None]
  - VOMITING [None]
